FAERS Safety Report 18759835 (Version 1)
Quarter: 2021Q1

REPORT INFORMATION
  Report Type: Spontaneous
  Country: US (occurrence: US)
  Receive Date: 20210119
  Receipt Date: 20210119
  Transmission Date: 20210419
  Serious: No
  Sender: FDA-Public Use
  Company Number: US-TEVA-2021-US-1870398

PATIENT
  Age: 70 Year
  Sex: Female

DRUGS (18)
  1. DIPHEN/ATROP [Concomitant]
     Active Substance: ATROPINE SULFATE\DIPHENOXYLATE
     Route: 065
  2. MAGNESIUM [Concomitant]
     Active Substance: MAGNESIUM
     Route: 065
  3. PROLIA [Concomitant]
     Active Substance: DENOSUMAB
     Route: 065
  4. TIZANIDINE. [Concomitant]
     Active Substance: TIZANIDINE
     Route: 065
  5. UBIQUINOL [Concomitant]
     Active Substance: UBIQUINOL
     Route: 065
  6. OMEPRAZOLE. [Concomitant]
     Active Substance: OMEPRAZOLE
     Route: 065
  7. LOPERAMIDE [Concomitant]
     Active Substance: LOPERAMIDE
     Route: 065
  8. PROBIOTIC [Concomitant]
     Active Substance: PROBIOTICS NOS
     Route: 065
  9. PSYLLIUM [Concomitant]
     Active Substance: PLANTAGO SEED
     Route: 065
  10. DIAZEPAM. [Concomitant]
     Active Substance: DIAZEPAM
     Route: 065
  11. COPAXONE [Suspect]
     Active Substance: GLATIRAMER ACETATE
     Indication: MULTIPLE SCLEROSIS
     Route: 058
     Dates: start: 20180201
  12. BIOTIN [Concomitant]
     Active Substance: BIOTIN
  13. DICYCLOMIN [Concomitant]
     Route: 065
  14. CALCIUM [Concomitant]
     Active Substance: CALCIUM
     Route: 065
  15. CEPHALEXIN. [Concomitant]
     Active Substance: CEPHALEXIN
     Route: 065
  16. LOMOTIL [Concomitant]
     Active Substance: ATROPINE SULFATE\DIPHENOXYLATE HYDROCHLORIDE
     Route: 065
  17. LORAZEPAM. [Concomitant]
     Active Substance: LORAZEPAM
     Route: 065
  18. ROSUVASTATIN. [Concomitant]
     Active Substance: ROSUVASTATIN
     Route: 065

REACTIONS (1)
  - Irritable bowel syndrome [Not Recovered/Not Resolved]
